FAERS Safety Report 11800589 (Version 1)
Quarter: 2015Q4

REPORT INFORMATION
  Report Type: Spontaneous
  Country: US (occurrence: US)
  Receive Date: 20151204
  Receipt Date: 20151204
  Transmission Date: 20160305
  Serious: No
  Sender: FDA-Public Use
  Company Number: PHEH2015US025166

PATIENT
  Age: 20 Year
  Sex: Female

DRUGS (1)
  1. TYKERB [Suspect]
     Active Substance: LAPATINIB DITOSYLATE
     Indication: BRAIN NEOPLASM
     Dosage: 1500 MG, QD (6 TABLETS)
     Route: 048

REACTIONS (3)
  - Nausea [Recovering/Resolving]
  - Skin exfoliation [Recovering/Resolving]
  - Off label use [Unknown]
